FAERS Safety Report 7949097-2 (Version None)
Quarter: 2011Q4

REPORT INFORMATION
  Report Type: 
  Country: None (occurrence: None)
  Receive Date: 20111129
  Receipt Date: 20111129
  Transmission Date: 20120403
  Serious: Yes (Other)
  Sender: FDA-Public Use
  Company Number: None

PATIENT
  Sex: Male
  Weight: 81.6475 kg

DRUGS (1)
  1. ALLOPURINOL TAB [Suspect]
     Indication: GOUT
     Dosage: 300 MG 1 A DAY STARTED
     Dates: start: 20111024

REACTIONS (3)
  - RASH [None]
  - PRODUCT SUBSTITUTION ISSUE [None]
  - PRURITUS [None]
